FAERS Safety Report 18743692 (Version 18)
Quarter: 2024Q3

REPORT INFORMATION
  Report Type: Spontaneous
  Country: US (occurrence: US)
  Receive Date: 20210115
  Receipt Date: 20240809
  Transmission Date: 20241017
  Serious: Yes (Hospitalization, Other)
  Sender: SANOFI AVENTIS
  Company Number: US-SA-SAC00000000220457

PATIENT
  Age: 74 Year
  Sex: Male
  Weight: 46 kg

DRUGS (14)
  1. CAPRELSA [Suspect]
     Active Substance: VANDETANIB
     Indication: Thyroid cancer
     Dosage: 300MG FOR 2 DAYS ON, THEN 1 DAY OFF
     Route: 048
     Dates: start: 20200909
  2. CAPRELSA [Suspect]
     Active Substance: VANDETANIB
     Dosage: 200 MG, QD
     Route: 048
  3. CAPRELSA [Suspect]
     Active Substance: VANDETANIB
     Dosage: 2 DF, QD
     Route: 048
  4. MODERNA COVID-19 VACCINE [Suspect]
     Active Substance: ELASOMERAN
     Indication: COVID-19 immunisation
     Dosage: UNK
  5. BACTRIM [Suspect]
     Active Substance: SULFAMETHOXAZOLE\TRIMETHOPRIM
     Dosage: UNK
  6. CLINDAMYCIN HYDROCHLORIDE [Concomitant]
     Active Substance: CLINDAMYCIN HYDROCHLORIDE
     Dosage: UNK
  7. MIRTAZAPINE [Concomitant]
     Active Substance: MIRTAZAPINE
     Dosage: 7.5 MG, QD
  8. CALCIUM [Concomitant]
     Active Substance: CALCIUM
     Dosage: UNK
  9. IRON [Concomitant]
     Active Substance: IRON
     Dosage: UNK
  10. TRAZODONE [Concomitant]
     Active Substance: TRAZODONE HYDROCHLORIDE
     Indication: Insomnia
     Dosage: UNK
  11. CYPROHEPTADINE [Concomitant]
     Active Substance: CYPROHEPTADINE
     Indication: Decreased appetite
     Dosage: 4 MG
  12. SYMBICORT [Concomitant]
     Active Substance: BUDESONIDE\FORMOTEROL FUMARATE DIHYDRATE
     Indication: Emphysema
     Dosage: UNK
  13. LEVOTHYROXINE [Concomitant]
     Active Substance: LEVOTHYROXINE\LEVOTHYROXINE SODIUM
     Indication: Thyroid disorder
     Dosage: DOSE WAS DECREASED
  14. DULOXETINE [Concomitant]
     Active Substance: DULOXETINE
     Indication: Insomnia
     Dosage: UNK

REACTIONS (28)
  - Multiple fractures [Recovering/Resolving]
  - Road traffic accident [Recovering/Resolving]
  - Traumatic liver injury [Recovering/Resolving]
  - Diaphragmatic rupture [Recovering/Resolving]
  - Traumatic lung injury [Unknown]
  - Joint injury [Recovering/Resolving]
  - Wound infection staphylococcal [Unknown]
  - Hospitalisation [Unknown]
  - Accident [Unknown]
  - Arthropathy [Unknown]
  - Skin exfoliation [Unknown]
  - Weight gain poor [Unknown]
  - Abdominal discomfort [Unknown]
  - Pain [Unknown]
  - Mobility decreased [Unknown]
  - Hypersensitivity [Unknown]
  - Acne [Unknown]
  - Depressed mood [Unknown]
  - Hypertension [Unknown]
  - Rash [Unknown]
  - Pruritus [Unknown]
  - Fatigue [Unknown]
  - Asthenia [Unknown]
  - Nausea [Unknown]
  - Depression [Unknown]
  - Diarrhoea [Unknown]
  - Dyspnoea [Unknown]
  - Inappropriate schedule of product administration [Unknown]

NARRATIVE: CASE EVENT DATE: 20210601
